FAERS Safety Report 6576573-X (Version None)
Quarter: 2010Q1

REPORT INFORMATION
  Report Type: 
  Country: None (occurrence: None)
  Receive Date: 20100210
  Receipt Date: 20100203
  Transmission Date: 20100710
  Serious: Yes (Other)
  Sender: FDA-Public Use
  Company Number: CA-ASTRAZENECA-2010SE04909

PATIENT
  Age: 13 Year
  Sex: Male

DRUGS (1)
  1. LIDOCAINE [Suspect]
     Indication: ANAESTHESIA
     Route: 042

REACTIONS (4)
  - COMA [None]
  - CONVULSION [None]
  - HYPERTENSION [None]
  - SOMNOLENCE [None]
